FAERS Safety Report 4751685-1 (Version None)
Quarter: 2005Q3

REPORT INFORMATION
  Report Type: 
  Country: None (occurrence: None)
  Receive Date: 20050824
  Receipt Date: 20050804
  Transmission Date: 20060218
  Serious: Yes (Congenital Anomaly)
  Sender: FDA-Public Use
  Company Number: 200512795FR

PATIENT
  Sex: Female
  Weight: 3.22 kg

DRUGS (5)
  1. LANTUS [Suspect]
     Indication: DIABETES MELLITUS
     Route: 064
     Dates: start: 20040101, end: 20041102
  2. HUMALOG [Concomitant]
     Indication: DIABETES MELLITUS
     Route: 064
  3. CELESTENE [Concomitant]
     Indication: PREMATURE BABY
     Route: 064
  4. CELESTENE [Concomitant]
     Indication: PROPHYLAXIS
     Route: 064
  5. LEVOTHYROX [Concomitant]
     Indication: THYROID NEOPLASM

REACTIONS (3)
  - ANEURYSM [None]
  - DRUG EXPOSURE DURING PREGNANCY [None]
  - VENTRICULAR SEPTAL DEFECT [None]
